FAERS Safety Report 8096969-7 (Version None)
Quarter: 2012Q1

REPORT INFORMATION
  Report Type: 
  Country: None (occurrence: None)
  Receive Date: 20120129
  Receipt Date: 20111212
  Transmission Date: 20120608
  Serious: No
  Sender: FDA-Public Use
  Company Number: US-ABBOTT-11P-163-0843093-00

PATIENT
  Sex: Male
  Weight: 82.628 kg

DRUGS (3)
  1. HUMIRA [Suspect]
     Indication: PSORIATIC ARTHROPATHY
     Route: 058
     Dates: start: 20110601
  2. MICARDIS [Concomitant]
     Indication: HYPERTENSION
  3. AMLODIPINE [Concomitant]
     Indication: HYPERTENSION

REACTIONS (5)
  - NEOPLASM MALIGNANT [None]
  - NEOPLASM PROGRESSION [None]
  - INJECTION SITE SWELLING [None]
  - ABDOMINAL PAIN [None]
  - INJECTION SITE PAIN [None]
